FAERS Safety Report 5358722-4 (Version None)
Quarter: 2007Q2

REPORT INFORMATION
  Report Type: 
  Country: None (occurrence: None)
  Receive Date: 20070615
  Receipt Date: 20070606
  Transmission Date: 20071010
  Serious: Yes (Life-Threatening)
  Sender: FDA-Public Use
  Company Number: DE-ROCHE-501491

PATIENT
  Age: 52 Year
  Sex: Male
  Weight: 100 kg

DRUGS (5)
  1. COPEGUS [Suspect]
     Indication: HEPATITIS C
     Route: 048
     Dates: start: 20060512, end: 20061214
  2. PEGASYS [Suspect]
     Indication: HEPATITIS C
     Route: 058
     Dates: start: 20060512, end: 20061214
  3. ASPIRIN [Concomitant]
     Indication: HEADACHE
     Dosage: 500 MG 1-3 TIMES PER YEAR.
     Route: 048
     Dates: start: 19760101, end: 20060201
  4. PROTAPHAN [Concomitant]
     Route: 058
     Dates: start: 20030301, end: 20061008
  5. NOVORAPID [Concomitant]
     Route: 058
     Dates: start: 20030301, end: 20061008

REACTIONS (1)
  - PANCYTOPENIA [None]
